FAERS Safety Report 10646026 (Version 1)
Quarter: 2014Q4

REPORT INFORMATION
  Report Type: Spontaneous
  Country: JP (occurrence: None)
  Receive Date: 20141209
  Receipt Date: 20141209
  Transmission Date: 20150529
  Serious: Yes (Other)
  Sender: FDA-Public Use
  Company Number: JP-2014VAL000623

PATIENT
  Age: 70 Year
  Sex: Male
  Weight: 65.1 kg

DRUGS (2)
  1. METOCLOPRAMIDE HYDROCHLORIDE. [Suspect]
     Active Substance: METOCLOPRAMIDE HYDROCHLORIDE
     Indication: ACROMEGALY
  2. BROMOCRIPTINE MESYLATE [Suspect]
     Active Substance: BROMOCRIPTINE MESYLATE
     Indication: ACROMEGALY

REACTIONS (3)
  - Blood prolactin decreased [None]
  - Blood growth hormone increased [None]
  - Blood prolactin increased [None]
